FAERS Safety Report 13565463 (Version 23)
Quarter: 2019Q3

REPORT INFORMATION
  Report Type: Report from Study
  Country: US (occurrence: US)
  Receive Date: 20170519
  Receipt Date: 20190805
  Transmission Date: 20191004
  Serious: Yes (Hospitalization, Other)
  Sender: FDA-Public Use
  Company Number: US-ACTELION-A-US2017-153992

PATIENT
  Age: 36 Year
  Sex: Female
  Weight: 44.9 kg

DRUGS (9)
  1. VELETRI [Suspect]
     Active Substance: EPOPROSTENOL
     Dosage: 31 NG/KG, PER MIN
     Route: 042
  2. TIZANIDINE. [Concomitant]
     Active Substance: TIZANIDINE
  3. VELETRI [Suspect]
     Active Substance: EPOPROSTENOL
     Dosage: 11.5 NG/KG, PER MIN
     Route: 042
  4. VELETRI [Suspect]
     Active Substance: EPOPROSTENOL
     Dosage: 25.1 NG/KG, PER MIN
     Route: 042
  5. VELETRI [Suspect]
     Active Substance: EPOPROSTENOL
     Dosage: 24.7 NG/KG, PER MIN
     Route: 042
  6. VELETRI [Suspect]
     Active Substance: EPOPROSTENOL
     Indication: PULMONARY ARTERIAL HYPERTENSION
     Dosage: 30.9 NG/KG, UNK
     Route: 042
  7. VELETRI [Suspect]
     Active Substance: EPOPROSTENOL
     Dosage: 31.3 NG/KG, PER MIN
     Route: 042
  8. VELETRI [Suspect]
     Active Substance: EPOPROSTENOL
     Dosage: 18 NG/KG, PER MIN
     Route: 042
  9. VELETRI [Suspect]
     Active Substance: EPOPROSTENOL
     Dosage: 25.8 NG/KG, PER MIN
     Route: 042

REACTIONS (68)
  - Neuropathy peripheral [Not Recovered/Not Resolved]
  - Fluid retention [Unknown]
  - Skin discomfort [Unknown]
  - Rash pruritic [Unknown]
  - Dyspnoea at rest [Unknown]
  - Dizziness [Unknown]
  - Arthralgia [Unknown]
  - Catheter site pain [Unknown]
  - Rhinorrhoea [Unknown]
  - Unevaluable event [Unknown]
  - Colonoscopy [Unknown]
  - Cardiac failure [Unknown]
  - Malnutrition [Unknown]
  - Chest discomfort [Unknown]
  - Lip swelling [Unknown]
  - Neuralgia [Unknown]
  - Catheter site related reaction [Unknown]
  - Weight decreased [Unknown]
  - Pain in jaw [Not Recovered/Not Resolved]
  - Rash generalised [Unknown]
  - Rash [Recovering/Resolving]
  - Myalgia [Unknown]
  - Vascular device infection [Unknown]
  - Emergency care [Unknown]
  - Nausea [Unknown]
  - Failure to thrive [Unknown]
  - Dermatitis contact [Unknown]
  - Gluten sensitivity [Unknown]
  - Colitis ulcerative [Unknown]
  - Gallbladder disorder [Unknown]
  - Abdominal pain upper [Unknown]
  - Palpitations [Unknown]
  - Hypoaesthesia [Unknown]
  - Eye irritation [Unknown]
  - Secretion discharge [Unknown]
  - Cholecystectomy [Unknown]
  - Catheter site erythema [Unknown]
  - Decreased appetite [Unknown]
  - Flushing [Unknown]
  - Dyspnoea [Recovered/Resolved]
  - Loss of personal independence in daily activities [Unknown]
  - Road traffic accident [Unknown]
  - Lacrimation increased [Unknown]
  - Sciatica [Unknown]
  - Urinary tract infection [Unknown]
  - Catheter site pruritus [Unknown]
  - Headache [Unknown]
  - Gastrointestinal wall thickening [Unknown]
  - Catheter site scab [Unknown]
  - Catheter site infection [Recovering/Resolving]
  - Joint injury [Unknown]
  - Gait inability [Unknown]
  - Joint swelling [Unknown]
  - Joint lock [Unknown]
  - Migraine [Recovering/Resolving]
  - Cortisol deficiency [Unknown]
  - Diarrhoea [Unknown]
  - Flatulence [Unknown]
  - Oropharyngeal pain [Not Recovered/Not Resolved]
  - Dermatitis herpetiformis [Unknown]
  - Musculoskeletal discomfort [Unknown]
  - Malaise [Unknown]
  - Insomnia [Unknown]
  - Limb asymmetry [Unknown]
  - Back pain [Unknown]
  - Mass [Unknown]
  - Nasopharyngitis [Unknown]
  - Cough [Unknown]

NARRATIVE: CASE EVENT DATE: 20170911
